FAERS Safety Report 12573953 (Version 2)
Quarter: 2016Q4

REPORT INFORMATION
  Report Type: Spontaneous
  Country: US (occurrence: US)
  Receive Date: 20160720
  Receipt Date: 20161021
  Transmission Date: 20170207
  Serious: Yes (Other)
  Sender: FDA-Public Use
  Company Number: US-SA-2016SA131671

PATIENT
  Sex: Female

DRUGS (12)
  1. VITAMIN B12 [Concomitant]
     Active Substance: CYANOCOBALAMIN
  2. CYMBALTA [Concomitant]
     Active Substance: DULOXETINE HYDROCHLORIDE
  3. PRAVASTATIN. [Concomitant]
     Active Substance: PRAVASTATIN
  4. PRAMIPEXOLE. [Concomitant]
     Active Substance: PRAMIPEXOLE
  5. TYLENOL [Concomitant]
     Active Substance: ACETAMINOPHEN
  6. AUBAGIO [Suspect]
     Active Substance: TERIFLUNOMIDE
     Indication: MULTIPLE SCLEROSIS
     Route: 048
     Dates: start: 20140430
  7. TOVIAZ [Concomitant]
     Active Substance: FESOTERODINE FUMARATE
  8. VITAMIN D [Concomitant]
     Active Substance: CHOLECALCIFEROL
  9. RECLAST [Concomitant]
     Active Substance: ZOLEDRONIC ACID
  10. BACLOFEN. [Concomitant]
     Active Substance: BACLOFEN
  11. TRIMETHOPRIM/SULFAMETHOXAZOLE [Concomitant]
  12. ASPIRIN. [Concomitant]
     Active Substance: ASPIRIN

REACTIONS (2)
  - Gastrointestinal infection [Unknown]
  - Renal disorder [Unknown]

NARRATIVE: CASE EVENT DATE: 2016
